FAERS Safety Report 15027109 (Version 5)
Quarter: 2019Q1

REPORT INFORMATION
  Report Type: Report from Study
  Country: US (occurrence: US)
  Receive Date: 20180619
  Receipt Date: 20190228
  Transmission Date: 20190417
  Serious: Yes (Hospitalization, Other)
  Sender: FDA-Public Use
  Company Number: US-ROCHE-2140859

PATIENT
  Age: 55 Year
  Sex: Female
  Weight: 46.76 kg

DRUGS (2)
  1. OCREVUS [Suspect]
     Active Substance: OCRELIZUMAB
     Indication: RELAPSING MULTIPLE SCLEROSIS
     Dosage: THIRD INFUSION
     Route: 042
     Dates: start: 20180723
  2. OCREVUS [Suspect]
     Active Substance: OCRELIZUMAB
     Indication: SECONDARY PROGRESSIVE MULTIPLE SCLEROSIS
     Route: 042
     Dates: start: 20170620

REACTIONS (13)
  - Cellulitis [Recovering/Resolving]
  - Amnesia [Unknown]
  - White blood cell count decreased [Not Recovered/Not Resolved]
  - Limb injury [Recovering/Resolving]
  - Intentional product use issue [Unknown]
  - Skin laceration [Recovering/Resolving]
  - Influenza like illness [Recovered/Resolved]
  - Peripheral swelling [Recovering/Resolving]
  - Dermatitis [Recovering/Resolving]
  - Erythema [Recovering/Resolving]
  - Multiple sclerosis relapse [Recovered/Resolved]
  - Off label use [Unknown]
  - Nausea [Recovered/Resolved]

NARRATIVE: CASE EVENT DATE: 201812
